FAERS Safety Report 4666563-6 (Version None)
Quarter: 2005Q2

REPORT INFORMATION
  Report Type: 
  Country: None (occurrence: None)
  Receive Date: 20050519
  Receipt Date: 20050513
  Transmission Date: 20051028
  Serious: Yes (Other)
  Sender: FDA-Public Use
  Company Number: US-SANOFI-SYNTHELABO-A03200501438

PATIENT
  Sex: Female

DRUGS (2)
  1. ELOXATIN [Suspect]
     Indication: OVARIAN CANCER
     Route: 042
     Dates: start: 20050512, end: 20050512
  2. DILAUDID [Concomitant]
     Dosage: UNK
     Route: 065

REACTIONS (1)
  - LARYNGOSPASM [None]
